FAERS Safety Report 9213918 (Version 2)
Quarter: 2014Q1

REPORT INFORMATION
  Report Type: Spontaneous
  Country: US (occurrence: US)
  Receive Date: 20130405
  Receipt Date: 20140110
  Transmission Date: 20141002
  Serious: Yes (Other)
  Sender: FDA-Public Use
  Company Number: US-BAYER-2013-040678

PATIENT
  Age: 36 Year
  Sex: Female

DRUGS (5)
  1. YASMIN [Suspect]
     Dosage: UNK
     Dates: start: 2001
  2. YAZ [Suspect]
     Dosage: UNK
     Dates: start: 2001
  3. XANAX [Concomitant]
  4. FLEXERIL [Concomitant]
  5. AMOXICILLIN [Concomitant]

REACTIONS (5)
  - Gallbladder injury [None]
  - Cholelithiasis [None]
  - Pain [None]
  - Injury [None]
  - Pain [None]
